FAERS Safety Report 5289175-2 (Version None)
Quarter: 2007Q1

REPORT INFORMATION
  Report Type: 
  Country: None (occurrence: None)
  Receive Date: 20070119
  Receipt Date: 20060207
  Transmission Date: 20070707
  Serious: Yes (Other)
  Sender: FDA-Public Use
  Company Number: BDI-007925

PATIENT
  Age: 78 Year
  Sex: Male

DRUGS (8)
  1. PROHANCE [Suspect]
     Indication: AMNESIA
     Dosage: 20 ML ONCE IV
     Route: 042
     Dates: start: 20060206, end: 20060206
  2. PROHANCE [Suspect]
     Indication: NUCLEAR MAGNETIC RESONANCE IMAGING BRAIN
     Dosage: 20 ML ONCE IV
     Route: 042
     Dates: start: 20060206, end: 20060206
  3. LIPITOR /01326101/ [Concomitant]
  4. NIACIN [Concomitant]
  5. ATENOLOL [Concomitant]
  6. FOSAMAX [Concomitant]
  7. CITALOPRAM HYDROBROMIDE [Concomitant]
  8. OMEPRAZOLE [Concomitant]

REACTIONS (2)
  - HYPERSENSITIVITY [None]
  - HYPOTENSION [None]
